FAERS Safety Report 6844036-X (Version None)
Quarter: 2010Q3

REPORT INFORMATION
  Report Type: 
  Country: None (occurrence: None)
  Receive Date: 20100714
  Receipt Date: 20100714
  Transmission Date: 20110219
  Serious: Yes (Hospitalization)
  Sender: FDA-Public Use
  Company Number: None

PATIENT
  Age: 59 Year
  Sex: Female
  Weight: 119 kg

DRUGS (12)
  1. WARFARIN SODIUM [Suspect]
     Indication: ANTICOAGULANT THERAPY
     Dosage: 10 MG ALT WITH 7.5 MG DAILY PO, PRIOR TO ADMISSION
     Route: 048
  2. WARFARIN SODIUM [Suspect]
     Indication: MITRAL VALVE REPLACEMENT
     Dosage: 10 MG ALT WITH 7.5 MG DAILY PO, PRIOR TO ADMISSION
     Route: 048
  3. FUROSEMIDE [Concomitant]
  4. LORAZEPAM [Concomitant]
  5. ACETAMINOPHEN AND HYDROCODONE BITARTRATE [Concomitant]
  6. ESCITALOPRAM [Concomitant]
  7. WARFARIN SODIUM [Concomitant]
  8. ASPIRIN [Concomitant]
  9. SIMVASTATIN [Concomitant]
  10. METOPROLOL TARTRATE [Concomitant]
  11. LEVOTHYROXINE SODIUM [Concomitant]
  12. VALSARTAN [Concomitant]

REACTIONS (5)
  - COLONIC POLYP [None]
  - DIVERTICULUM INTESTINAL HAEMORRHAGIC [None]
  - ILEAL ULCER [None]
  - INTERNATIONAL NORMALISED RATIO INCREASED [None]
  - RECTAL HAEMORRHAGE [None]
